FAERS Safety Report 19996277 (Version 1)
Quarter: 2021Q4

REPORT INFORMATION
  Report Type: Spontaneous
  Country: CN (occurrence: CN)
  Receive Date: 20211026
  Receipt Date: 20211026
  Transmission Date: 20220303
  Serious: Yes (Other)
  Sender: FDA-Public Use
  Company Number: CN-ROCHE-2942592

PATIENT
  Age: 57 Year
  Sex: Female

DRUGS (3)
  1. KADCYLA [Suspect]
     Active Substance: ADO-TRASTUZUMAB EMTANSINE
     Indication: HER2 positive breast cancer
     Route: 065
     Dates: start: 202010
  2. AVASTIN [Suspect]
     Active Substance: BEVACIZUMAB
     Indication: HER2 positive breast cancer
     Route: 065
  3. PYROTINIB [Concomitant]
     Active Substance: PYROTINIB
     Indication: HER2 positive breast cancer

REACTIONS (4)
  - Brain oedema [Unknown]
  - Muscular weakness [Unknown]
  - Hypoaesthesia [Unknown]
  - Off label use [Unknown]
